FAERS Safety Report 16110696 (Version 1)
Quarter: 2019Q1

REPORT INFORMATION
  Report Type: Spontaneous
  Country: FR (occurrence: FR)
  Receive Date: 20190325
  Receipt Date: 20190325
  Transmission Date: 20190418
  Serious: Yes (Hospitalization)
  Sender: FDA-Public Use
  Company Number: FR-BEH-2019100573

PATIENT
  Age: 15 Year
  Sex: Female
  Weight: 49.5 kg

DRUGS (1)
  1. PRIVIGEN [Suspect]
     Active Substance: HUMAN IMMUNOGLOBULIN G
     Indication: PRODUCT USED FOR UNKNOWN INDICATION
     Dosage: 20 G, UNK
     Route: 042
     Dates: start: 20190222, end: 20190222

REACTIONS (5)
  - Tremor [Unknown]
  - Malaise [Unknown]
  - Chills [Unknown]
  - Feeling cold [Unknown]
  - Asthenia [Unknown]

NARRATIVE: CASE EVENT DATE: 20190222
